FAERS Safety Report 8575983-9 (Version None)
Quarter: 2012Q3

REPORT INFORMATION
  Report Type: 
  Country: None (occurrence: None)
  Receive Date: 20120807
  Receipt Date: 20120721
  Transmission Date: 20120928
  Serious: No
  Sender: FDA-Public Use
  Company Number: US-009507513-1208USA001409

PATIENT

DRUGS (1)
  1. CLARITIN [Suspect]
     Indication: SEASONAL ALLERGY
     Dosage: 15 MG, ONCE
     Route: 048
     Dates: start: 20120721

REACTIONS (3)
  - LACRIMATION INCREASED [None]
  - HEADACHE [None]
  - OVERDOSE [None]
